FAERS Safety Report 15607737 (Version 1)
Quarter: 2018Q4

REPORT INFORMATION
  Report Type: Report from Study
  Country: CZ (occurrence: CZ)
  Receive Date: 20181112
  Receipt Date: 20181112
  Transmission Date: 20190205
  Serious: Yes (Hospitalization, Other)
  Sender: FDA-Public Use
  Company Number: CZ-ASTRAZENECA-2016SF10981

PATIENT
  Age: 23787 Day
  Sex: Male

DRUGS (14)
  1. AZD6140 [Suspect]
     Active Substance: TICAGRELOR
     Indication: CARDIOVASCULAR EVENT PROPHYLAXIS
     Route: 048
     Dates: start: 20151022, end: 20161020
  2. GLIMEPIRIDE. [Concomitant]
     Active Substance: GLIMEPIRIDE
     Indication: DIABETES MELLITUS
     Route: 048
     Dates: start: 20150122
  3. ANOPYRIN [Concomitant]
     Active Substance: ASPIRIN
     Indication: ANTI-PLATELET ANTIBODY
     Route: 048
     Dates: end: 20161024
  4. RAMIL [Concomitant]
     Indication: HYPERTENSION
     Route: 048
  5. LIPANTHYL [Concomitant]
     Active Substance: FENOFIBRATE
     Indication: LIPIDS DECREASED
     Route: 048
  6. DETRALEX [Concomitant]
     Active Substance: DIOSMIN\HESPERIDIN
     Indication: PERIPHERAL VENOUS DISEASE
     Route: 048
  7. RHEFLUIN [Concomitant]
     Indication: HYPERTENSION
     Route: 048
  8. LUSOPRESS [Concomitant]
     Active Substance: NITRENDIPINE
     Indication: HYPERTENSION
     Route: 048
  9. METFORMIN [Concomitant]
     Active Substance: METFORMIN HYDROCHLORIDE
     Indication: DIABETES MELLITUS
     Route: 048
  10. AZD6140 [Suspect]
     Active Substance: TICAGRELOR
     Indication: CARDIOVASCULAR EVENT PROPHYLAXIS
     Route: 048
     Dates: start: 20141030, end: 20151022
  11. PREDUCTAL [Concomitant]
     Active Substance: TRIMETAZIDINE DIHYDROCHLORIDE
     Indication: METABOLIC DISORDER
     Route: 048
  12. VASOCARDIN [Concomitant]
     Active Substance: METOPROLOL
     Indication: MYOCARDIAL ISCHAEMIA
     Route: 048
     Dates: end: 20161020
  13. MONOTAB [Concomitant]
     Active Substance: ISOSORBIDE MONONITRATE
     Indication: ANGINA PECTORIS
     Route: 048
  14. MOLSIHEXAL [Concomitant]
     Active Substance: MOLSIDOMINE
     Indication: ANGINA PECTORIS
     Route: 048

REACTIONS (1)
  - Supraventricular tachycardia [Recovered/Resolved]

NARRATIVE: CASE EVENT DATE: 20161020
